FAERS Safety Report 25521627 (Version 2)
Quarter: 2025Q3

REPORT INFORMATION
  Report Type: Spontaneous
  Country: AU (occurrence: None)
  Receive Date: 20250706
  Receipt Date: 20250711
  Transmission Date: 20251021
  Serious: Yes (Hospitalization)
  Sender: NATCO PHARMA
  Company Number: AU-NATCOUSA-2025-NATCOUSA-000327

PATIENT
  Sex: Female

DRUGS (1)
  1. GLYCOPYRROLATE [Suspect]
     Active Substance: GLYCOPYRROLATE
     Indication: Bradycardia
     Route: 065

REACTIONS (2)
  - Maternal exposure during pregnancy [Unknown]
  - Stress cardiomyopathy [Recovered/Resolved]
